FAERS Safety Report 21635466 (Version 1)
Quarter: 2022Q4

REPORT INFORMATION
  Report Type: Spontaneous
  Country: US (occurrence: US)
  Receive Date: 20221123
  Receipt Date: 20221123
  Transmission Date: 20230113
  Serious: No
  Sender: FDA-Public Use
  Company Number: US-NOVOPROD-856652

PATIENT
  Age: 17 Year
  Sex: Male

DRUGS (1)
  1. NOVOLOG [Suspect]
     Active Substance: INSULIN ASPART
     Indication: Product used for unknown indication
     Dosage: 10-20 UNITS 2-3X/DAY
     Route: 058
     Dates: start: 20210929, end: 20211004

REACTIONS (5)
  - Lethargy [Recovered/Resolved]
  - Dehydration [Recovered/Resolved]
  - Micturition disorder [Recovered/Resolved]
  - Hyperglycaemia [Recovered/Resolved]
  - Device leakage [Unknown]

NARRATIVE: CASE EVENT DATE: 20210929
